FAERS Safety Report 16399016 (Version 2)
Quarter: 2019Q4

REPORT INFORMATION
  Report Type: Spontaneous
  Country: CN (occurrence: CN)
  Receive Date: 20190606
  Receipt Date: 20191120
  Transmission Date: 20200122
  Serious: Yes (Other)
  Sender: FDA-Public Use
  Company Number: CN-ASTRAZENECA-2019SE81402

PATIENT
  Age: 20454 Day
  Sex: Female
  Weight: 54 kg

DRUGS (3)
  1. TALCID [Concomitant]
     Active Substance: HYDROTALCITE
     Indication: GASTRITIS
     Dosage: 2 TABLETS TID
     Route: 048
     Dates: start: 20190521, end: 20190524
  2. ESOMEPRAZOLE MAGNESIUM. [Suspect]
     Active Substance: ESOMEPRAZOLE MAGNESIUM
     Indication: GASTRITIS
     Route: 048
     Dates: start: 20190521, end: 20190524
  3. HYDROTALCITE [Concomitant]
     Active Substance: HYDROTALCITE
     Dates: start: 20190521, end: 20190524

REACTIONS (4)
  - Palpitations [Recovering/Resolving]
  - Hypoaesthesia [Recovering/Resolving]
  - Asthenia [Recovering/Resolving]
  - Tremor [Recovering/Resolving]

NARRATIVE: CASE EVENT DATE: 20190521
